FAERS Safety Report 12440378 (Version 1)
Quarter: 2016Q2

REPORT INFORMATION
  Report Type: Spontaneous
  Country: US (occurrence: US)
  Receive Date: 20160606
  Receipt Date: 20160606
  Transmission Date: 20160815
  Serious: No
  Sender: FDA-Public Use
  Company Number: US-AMGEN-USASP2016068476

PATIENT
  Age: 88 Year
  Sex: Female

DRUGS (2)
  1. PROLIA [Suspect]
     Active Substance: DENOSUMAB
     Indication: OSTEOPOROSIS
     Dosage: UNK
     Route: 065
     Dates: start: 2012
  2. PROCRIT [Suspect]
     Active Substance: ERYTHROPOIETIN
     Indication: BONE MARROW DISORDER
     Dosage: UNK
     Route: 065
     Dates: start: 2014

REACTIONS (4)
  - Limb discomfort [Recovering/Resolving]
  - Bone marrow disorder [Unknown]
  - Groin pain [Recovering/Resolving]
  - Pain [Recovering/Resolving]
